FAERS Safety Report 6371531-2 (Version None)
Quarter: 2009Q3

REPORT INFORMATION
  Report Type: 
  Country: None (occurrence: None)
  Receive Date: 20090923
  Receipt Date: 20080404
  Transmission Date: 20100115
  Serious: Yes (Other)
  Sender: FDA-Public Use
  Company Number: US-ASTRAZENECA-2007UW25125

PATIENT
  Age: 22976 Day
  Sex: Female
  Weight: 85.3 kg

DRUGS (22)
  1. SEROQUEL [Suspect]
     Indication: INSOMNIA
     Dosage: 200MG-800MG
     Route: 048
     Dates: start: 20020101, end: 20070301
  2. SEROQUEL [Suspect]
     Indication: BIPOLAR DISORDER
     Dosage: 200MG-800MG
     Route: 048
     Dates: start: 20020101, end: 20070301
  3. SEROQUEL [Suspect]
     Dosage: 75 - 400 MG
     Route: 048
     Dates: start: 20010126
  4. SEROQUEL [Suspect]
     Dosage: 75 - 400 MG
     Route: 048
     Dates: start: 20010126
  5. ACTOS [Concomitant]
     Dosage: STRENGTH 15 - 45 MG, DOSE - 45 MG DAILY
     Route: 048
     Dates: start: 20051121
  6. ARIPIPRAZOLE [Concomitant]
     Dosage: STRENGTH 5 - 10 MG, DOSE 10 MG DAILY
     Dates: start: 20051114
  7. ATIVAN [Concomitant]
     Dosage: 3 - 4 MG
     Dates: start: 20030722
  8. ATIVAN [Concomitant]
     Dosage: STRENGTH 4 MG/ML, DOSE 10 ML AS DIRECTED
  9. COGENTIN [Concomitant]
     Dates: start: 20030722
  10. COGENTIN [Concomitant]
     Dosage: STRENGTH 1 MG/ML, DOSE 1 MG DAILY
  11. COUMADIN [Concomitant]
     Dosage: STRENGTH 1 - 5 MG
     Dates: start: 20030722
  12. DELTASONE [Concomitant]
     Dates: start: 20051121
  13. DEPAKOTE [Concomitant]
     Dosage: STRENGTH 250 - 500 MG, DOSE - 750 - 1000 MG
     Route: 048
     Dates: start: 20011218
  14. GEODON [Concomitant]
     Dates: start: 20061208
  15. LANTUS [Concomitant]
     Dosage: 5 - 10 UNITS EVERY EVENING
     Dates: start: 20030722
  16. LASIX [Concomitant]
     Route: 048
     Dates: start: 20060828
  17. LIPITOR [Concomitant]
     Dates: start: 20030624
  18. LITHIUM [Concomitant]
     Dosage: STRENGTH 150 - 300 MG, DOSE 450 MG TWO TIMES A DAY
     Dates: start: 20030722
  19. LOTEMAX [Concomitant]
     Dates: start: 20051114
  20. NORVASC [Concomitant]
     Dates: start: 20030722
  21. PRINZIDE [Concomitant]
     Dosage: 20 - 12.5 MG TWO TIMES A DAY
     Dates: start: 20030722
  22. SYNTHROID [Concomitant]
     Dates: start: 20040106

REACTIONS (2)
  - DIABETES MELLITUS [None]
  - DIABETIC COMA [None]
